FAERS Safety Report 24553749 (Version 1)
Quarter: 2024Q4

REPORT INFORMATION
  Report Type: Spontaneous
  Country: US (occurrence: US)
  Receive Date: 20241028
  Receipt Date: 20241028
  Transmission Date: 20250114
  Serious: Yes (Other)
  Sender: APOTEX
  Company Number: US-APOTEX-2024AP016268

PATIENT
  Age: 52 Year
  Sex: Male

DRUGS (10)
  1. MYCOPHENOLATE SODIUM [Suspect]
     Active Substance: MYCOPHENOLATE SODIUM
     Indication: Prophylaxis against transplant rejection
     Dosage: UNK
     Route: 065
     Dates: start: 202211
  2. DEFERASIROX [Concomitant]
     Active Substance: DEFERASIROX
     Indication: Chelation therapy
     Dosage: UNK
     Route: 065
     Dates: start: 202001
  3. FOLIC ACID [Concomitant]
     Active Substance: FOLIC ACID
     Indication: Pyruvate kinase deficiency anaemia
     Dosage: 1 MILLIGRAM, QD
     Route: 065
  4. FOLIC ACID [Concomitant]
     Active Substance: FOLIC ACID
     Indication: Haemolytic anaemia
  5. MITAPIVAT [Concomitant]
     Active Substance: MITAPIVAT
     Indication: Pyruvate kinase deficiency anaemia
     Dosage: 5 MILLIGRAM, BID
     Route: 065
     Dates: start: 202211
  6. MITAPIVAT [Concomitant]
     Active Substance: MITAPIVAT
     Indication: Haemolytic anaemia
     Dosage: 20 MILLIGRAM, BID
     Route: 065
     Dates: start: 202212
  7. MITAPIVAT [Concomitant]
     Active Substance: MITAPIVAT
     Dosage: 50 MILLIGRAM, BID
     Route: 065
     Dates: start: 202302, end: 202308
  8. MITAPIVAT [Concomitant]
     Active Substance: MITAPIVAT
     Dosage: 50 MILLIGRAM, BID
     Route: 065
     Dates: start: 202308
  9. TACROLIMUS [Concomitant]
     Active Substance: TACROLIMUS
     Indication: Prophylaxis against transplant rejection
     Dosage: UNK
     Route: 065
     Dates: start: 202211
  10. PREDNISONE [Concomitant]
     Active Substance: PREDNISONE
     Indication: Prophylaxis against transplant rejection
     Dosage: UNK
     Route: 065
     Dates: start: 202211

REACTIONS (2)
  - Pyruvate kinase deficiency anaemia [Recovering/Resolving]
  - Haemolytic anaemia [Recovering/Resolving]

NARRATIVE: CASE EVENT DATE: 20221201
